FAERS Safety Report 17153380 (Version 1)
Quarter: 2019Q4

REPORT INFORMATION
  Report Type: Report from Study
  Country: DE (occurrence: DE)
  Receive Date: 20191213
  Receipt Date: 20191213
  Transmission Date: 20200122
  Serious: Yes (Other)
  Sender: FDA-Public Use
  Company Number: PHHY2016DE107484

PATIENT
  Age: 54 Year
  Sex: Female

DRUGS (4)
  1. KREON [Concomitant]
     Active Substance: PANCRELIPASE
     Indication: PANCREATECTOMY
     Dosage: UNK
     Route: 048
     Dates: start: 201405
  2. GILENYA [Suspect]
     Active Substance: FINGOLIMOD HYDROCHLORIDE
     Indication: RELAPSING-REMITTING MULTIPLE SCLEROSIS
     Dosage: 0.5 MG, QD
     Route: 048
     Dates: start: 20150108, end: 20161209
  3. PANTOPRAZOL [Concomitant]
     Active Substance: PANTOPRAZOLE SODIUM
     Indication: PROPHYLAXIS
     Dosage: UNK
     Route: 065
     Dates: start: 20170215, end: 20170217
  4. LORAZEPAM. [Concomitant]
     Active Substance: LORAZEPAM
     Indication: RESTLESSNESS
     Dosage: 1 MG, QD
     Route: 048
     Dates: start: 2012

REACTIONS (4)
  - Muscle rupture [Recovered/Resolved]
  - Basal cell carcinoma [Recovered/Resolved]
  - Acute myeloid leukaemia [Unknown]
  - Multiple sclerosis relapse [Recovered/Resolved]

NARRATIVE: CASE EVENT DATE: 20160519
